FAERS Safety Report 5975198-4 (Version None)
Quarter: 2008Q4

REPORT INFORMATION
  Report Type: 
  Country: None (occurrence: None)
  Receive Date: 20081202
  Receipt Date: 20081017
  Transmission Date: 20090506
  Serious: No
  Sender: FDA-Public Use
  Company Number: US-ABBOTT-08P-163-0482518-00

PATIENT
  Sex: Female
  Weight: 83.99 kg

DRUGS (2)
  1. LUPRON DEPOT [Suspect]
     Indication: ENDOMETRIOSIS
     Route: 030
     Dates: start: 20080601
  2. ADVIR [Concomitant]
     Indication: DRUG USE FOR UNKNOWN INDICATION
     Dosage: 250/50 DAILY
     Route: 048

REACTIONS (3)
  - HOT FLUSH [None]
  - MENSTRUAL DISORDER [None]
  - MUSCLE SPASMS [None]
